FAERS Safety Report 8967300 (Version 2)
Quarter: 2013Q4

REPORT INFORMATION
  Report Type: Spontaneous
  Country: US (occurrence: US)
  Receive Date: 20121214
  Receipt Date: 20131202
  Transmission Date: 20140711
  Serious: No
  Sender: FDA-Public Use
  Company Number: US-GLAXOSMITHKLINE-A0984460A

PATIENT
  Age: 48 Year
  Sex: Female

DRUGS (2)
  1. FLONASE [Suspect]
     Indication: NASAL CONGESTION
     Dosage: 4PUFF PER DAY
     Route: 045
     Dates: start: 20120711, end: 20120711
  2. PREDNISONE [Concomitant]

REACTIONS (3)
  - Ocular hyperaemia [Recovering/Resolving]
  - Eye irritation [Recovering/Resolving]
  - Sinus headache [Recovering/Resolving]
